FAERS Safety Report 11821369 (Version 1)
Quarter: 2015Q4

REPORT INFORMATION
  Report Type: Spontaneous
  Country: US (occurrence: US)
  Receive Date: 20151210
  Receipt Date: 20151210
  Transmission Date: 20160305
  Serious: No
  Sender: FDA-Public Use
  Company Number: US-PFIZER INC-2015412476

PATIENT
  Age: 28 Year

DRUGS (1)
  1. LYRICA [Suspect]
     Active Substance: PREGABALIN
     Indication: SCIATICA
     Dosage: 1 DF, UNK (EVERY 12 HOURS)

REACTIONS (3)
  - Burning sensation [Unknown]
  - Impaired work ability [Unknown]
  - Drug ineffective [Unknown]
